FAERS Safety Report 14526428 (Version 3)
Quarter: 2018Q1

REPORT INFORMATION
  Report Type: Report from Study
  Country: BR (occurrence: BR)
  Receive Date: 20180213
  Receipt Date: 20180227
  Transmission Date: 20180509
  Serious: Yes (Hospitalization, Other)
  Sender: FDA-Public Use
  Company Number: BR-ALEXION PHARMACEUTICALS INC-A201801472

PATIENT
  Age: 37 Year
  Sex: Female

DRUGS (2)
  1. SOLIRIS [Suspect]
     Active Substance: ECULIZUMAB
     Indication: PAROXYSMAL NOCTURNAL HAEMOGLOBINURIA
     Dosage: 600 MG, QW
     Route: 042
     Dates: start: 20150929, end: 20151021
  2. SOLIRIS [Suspect]
     Active Substance: ECULIZUMAB
     Dosage: 900 MG, Q2W
     Route: 042
     Dates: start: 20151028

REACTIONS (21)
  - Headache [Unknown]
  - Inappropriate schedule of drug administration [Recovered/Resolved]
  - Dysphagia [Not Recovered/Not Resolved]
  - Gastrointestinal sounds abnormal [Unknown]
  - Haemoglobin decreased [Not Recovered/Not Resolved]
  - Condition aggravated [Unknown]
  - Discomfort [Unknown]
  - Haemolysis [Unknown]
  - Urine output decreased [Unknown]
  - Renal disorder [Unknown]
  - Vomiting [Unknown]
  - Blood lactate dehydrogenase increased [Not Recovered/Not Resolved]
  - Pain [Unknown]
  - Renal impairment [Unknown]
  - Dehydration [Unknown]
  - Abdominal discomfort [Not Recovered/Not Resolved]
  - Depressed mood [Unknown]
  - Dysgeusia [Not Recovered/Not Resolved]
  - Nausea [Not Recovered/Not Resolved]
  - Chromaturia [Unknown]
  - Poor venous access [Unknown]

NARRATIVE: CASE EVENT DATE: 20180201
